FAERS Safety Report 7687571-7 (Version None)
Quarter: 2011Q3

REPORT INFORMATION
  Report Type: 
  Country: None (occurrence: None)
  Receive Date: 20110811
  Receipt Date: 20110729
  Transmission Date: 20111222
  Serious: Yes (Other)
  Sender: FDA-Public Use
  Company Number: MSTR-NO-1105S-0156

PATIENT
  Age: 81 Year
  Sex: Male

DRUGS (3)
  1. METASTRON [Suspect]
     Indication: METASTATIC PAIN
     Dosage: SINGLE DOSE, INTRAVENOUS
     Route: 042
     Dates: start: 20090827, end: 20090827
  2. FENTANYL [Concomitant]
  3. ZOLEDRONIC ACID [Concomitant]

REACTIONS (3)
  - NEOPLASM PROGRESSION [None]
  - ANAEMIA [None]
  - PROSTATE CANCER [None]
